FAERS Safety Report 8536365-9 (Version None)
Quarter: 2012Q3

REPORT INFORMATION
  Report Type: 
  Country: None (occurrence: None)
  Receive Date: 20120725
  Receipt Date: 20120724
  Transmission Date: 20120928
  Serious: Yes (Life-Threatening, Other)
  Sender: FDA-Public Use
  Company Number: FR-PFIZER INC-2012147421

PATIENT
  Age: 40 Year
  Sex: Female

DRUGS (3)
  1. ARGATROBAN [Suspect]
     Indication: HEPARIN-INDUCED THROMBOCYTOPENIA
     Dosage: 1 UG/KG/MIN
     Route: 042
     Dates: start: 20120415, end: 20120424
  2. ARGATROBAN [Suspect]
     Dosage: 1 UG/KG/MIN
     Route: 042
     Dates: start: 20120424, end: 20120424
  3. ARGATROBAN [Suspect]
     Dosage: 1 UG/KG/MIN
     Route: 042
     Dates: start: 20120430, end: 20120518

REACTIONS (4)
  - SHOCK HAEMORRHAGIC [None]
  - SPLENIC INFARCTION [None]
  - ANEURYSM [None]
  - HAEMORRHAGE [None]
